FAERS Safety Report 7777224-9 (Version None)
Quarter: 2011Q3

REPORT INFORMATION
  Report Type: 
  Country: None (occurrence: None)
  Receive Date: 20110926
  Receipt Date: 20110914
  Transmission Date: 20111222
  Serious: Yes (Other)
  Sender: FDA-Public Use
  Company Number: PHEH2009US16951

PATIENT
  Sex: Female

DRUGS (2)
  1. ZOMETA [Suspect]
  2. AREDIA [Suspect]

REACTIONS (17)
  - INJURY [None]
  - FISTULA [None]
  - ECCHYMOSIS [None]
  - MULTIPLE MYELOMA [None]
  - ERYTHEMA [None]
  - OSTEONECROSIS OF JAW [None]
  - DECREASED INTEREST [None]
  - PAIN [None]
  - OSTEOMYELITIS [None]
  - EXPOSED BONE IN JAW [None]
  - HYPERTENSION [None]
  - ANXIETY [None]
  - HEPATITIS C [None]
  - DENTAL CARIES [None]
  - HEADACHE [None]
  - FACE OEDEMA [None]
  - TOOTH LOSS [None]
